FAERS Safety Report 6607006-2 (Version None)
Quarter: 2010Q1

REPORT INFORMATION
  Report Type: 
  Country: None (occurrence: None)
  Receive Date: 20100226
  Receipt Date: 20100218
  Transmission Date: 20100710
  Serious: Yes (Other)
  Sender: FDA-Public Use
  Company Number: US-AMGEN-QUU385023

PATIENT
  Sex: Female
  Weight: 58.5 kg

DRUGS (12)
  1. ENBREL [Suspect]
     Indication: RHEUMATOID ARTHRITIS
     Route: 058
     Dates: start: 20050706
  2. METHOTREXATE [Concomitant]
     Route: 048
     Dates: start: 20050706
  3. SYNTHROID [Concomitant]
     Dates: start: 20060519
  4. FOLIC ACID [Concomitant]
     Dates: start: 20050706
  5. PRILOSEC [Concomitant]
     Dates: start: 20051111
  6. SIMVASTATIN [Concomitant]
     Dates: start: 20080226
  7. CELEXA [Concomitant]
     Dates: start: 20090924
  8. ALLEGRA [Concomitant]
     Dates: start: 20090924
  9. ARICEPT [Concomitant]
     Dates: start: 20090924
  10. ZOLEDRONIC ACID [Concomitant]
     Dates: start: 20090921
  11. MULTI-VITAMINS [Concomitant]
  12. CALCIUM CARBONATE/VITAMIN D [Concomitant]

REACTIONS (2)
  - FRONTOTEMPORAL DEMENTIA [None]
  - MOVEMENT DISORDER [None]
